FAERS Safety Report 8471093-X (Version None)
Quarter: 2012Q2

REPORT INFORMATION
  Report Type: 
  Country: None (occurrence: None)
  Receive Date: 20120627
  Receipt Date: 20120613
  Transmission Date: 20120825
  Serious: Yes (Other)
  Sender: FDA-Public Use
  Company Number: DE-AMGEN-DEUCT2012032898

PATIENT
  Age: 55 Year
  Sex: Female
  Weight: 55 kg

DRUGS (3)
  1. ETANERCEPT [Suspect]
     Dosage: 50 MG, QWK
     Dates: start: 20100714, end: 20111201
  2. ETANERCEPT [Suspect]
     Dosage: 25 MG, QWK
     Dates: start: 20100303, end: 20100713
  3. ETANERCEPT [Suspect]
     Indication: PSORIASIS
     Dosage: 50 MG, QWK
     Route: 058
     Dates: start: 20090828, end: 20100223

REACTIONS (1)
  - BREAST CANCER [None]
